FAERS Safety Report 21723721 (Version 1)
Quarter: 2022Q4

REPORT INFORMATION
  Report Type: Report from Study
  Country: US (occurrence: US)
  Receive Date: 20221213
  Receipt Date: 20221213
  Transmission Date: 20230113
  Serious: Yes (Hospitalization, Other)
  Sender: FDA-Public Use
  Company Number: US-BAYER-2022A151827

PATIENT
  Age: 45 Year
  Sex: Female

DRUGS (3)
  1. COPANLISIB [Suspect]
     Active Substance: COPANLISIB
     Indication: Thyroid cancer
     Dosage: 60 MG, ONCE
     Dates: start: 20220321, end: 20220321
  2. VEMURAFENIB [Suspect]
     Active Substance: VEMURAFENIB
     Indication: Thyroid cancer
     Dosage: 960 MG, BID
     Dates: start: 20220314, end: 20220324
  3. NAPROXEN [Concomitant]
     Active Substance: NAPROXEN
     Indication: Arthralgia
     Dosage: 1000 MG
     Dates: start: 20220323, end: 20220323

REACTIONS (6)
  - Blood creatinine increased [Recovered/Resolved]
  - Anaemia [None]
  - Rash [None]
  - Pyrexia [None]
  - Nausea [None]
  - Vomiting [None]

NARRATIVE: CASE EVENT DATE: 20220321
